FAERS Safety Report 9312039 (Version 1)
Quarter: 2013Q2

REPORT INFORMATION
  Report Type: Spontaneous
  Country: BE (occurrence: BE)
  Receive Date: 20130528
  Receipt Date: 20130528
  Transmission Date: 20140414
  Serious: Yes (Hospitalization)
  Sender: FDA-Public Use
  Company Number: BE-JNJFOC-20130510976

PATIENT
  Age: 80 Year
  Sex: Male

DRUGS (5)
  1. XARELTO [Suspect]
     Indication: DEEP VEIN THROMBOSIS
     Route: 048
     Dates: start: 20130503
  2. XARELTO [Suspect]
     Indication: DEEP VEIN THROMBOSIS
     Route: 048
     Dates: start: 201304
  3. ZOCOR [Concomitant]
     Route: 065
  4. ASAFLOW [Concomitant]
     Route: 065
  5. AMLODIPINE [Concomitant]
     Route: 065

REACTIONS (1)
  - Cerebrovascular accident [Unknown]
